FAERS Safety Report 16961838 (Version 1)
Quarter: 2019Q4

REPORT INFORMATION
  Report Type: Spontaneous
  Country: US (occurrence: US)
  Receive Date: 20191025
  Receipt Date: 20191025
  Transmission Date: 20200122
  Serious: Yes (Other)
  Sender: FDA-Public Use
  Company Number: US-FRESENIUS MEDICAL CARE RENAL THERAPIES GROUP-FMC-1910-001379

PATIENT
  Sex: Female
  Weight: 66 kg

DRUGS (17)
  1. DELFLEX WITH DEXTROSE 2.5% LOW MAGNESIUM LOW CALCIUM [Suspect]
     Active Substance: CALCIUM CHLORIDE\DEXTROSE\MAGNESIUM CHLORIDE\SODIUM CHLORIDE\SODIUM LACTATE
     Indication: END STAGE RENAL DISEASE
     Dosage: FILL VOLUME = 2400 ML, 5 EXCHANGES, LAST FILL  200 ML, 2 DAYTIME EXCHANGES OF 2000 ML/EACH
     Route: 033
     Dates: start: 20190101
  2. METOPROLOL. [Concomitant]
     Active Substance: METOPROLOL
  3. TORSEMIDE. [Concomitant]
     Active Substance: TORSEMIDE
  4. RENAL VITAMINS [Concomitant]
     Active Substance: VITAMINS
  5. TURMERIC                           /01079602/ [Concomitant]
     Active Substance: HERBALS\TURMERIC
  6. ASPIRIN. [Concomitant]
     Active Substance: ASPIRIN
  7. CALCIUM [Concomitant]
     Active Substance: CALCIUM
  8. FERROUS SULFATE. [Concomitant]
     Active Substance: FERROUS SULFATE
  9. DELFLEX WITH DEXTROSE 1.5% LOW MAGNESIUM LOW CALCIUM [Suspect]
     Active Substance: CALCIUM CHLORIDE\DEXTROSE\MAGNESIUM CHLORIDE\SODIUM CHLORIDE\SODIUM LACTATE
     Indication: END STAGE RENAL DISEASE
     Dosage: FILL VOLUME = 2400 ML, 5 EXCHANGES, LAST FILL  200 ML, 2 DAYTIME EXCHANGES OF 2000 ML/EACH
     Route: 033
     Dates: start: 20190101
  10. ATORVASTATIN [Concomitant]
     Active Substance: ATORVASTATIN
  11. CALCITRIOL. [Concomitant]
     Active Substance: CALCITRIOL
  12. COLACE [Concomitant]
     Active Substance: DOCUSATE SODIUM
  13. MIRALAX [Concomitant]
     Active Substance: POLYETHYLENE GLYCOL 3350
  14. VITAMIN D3 [Concomitant]
     Active Substance: CHOLECALCIFEROL
  15. DELFLEX WITH DEXTROSE 4.25% LOW MAGNESIUM LOW CALCIUM [Suspect]
     Active Substance: CALCIUM CHLORIDE\DEXTROSE\MAGNESIUM CHLORIDE\SODIUM CHLORIDE\SODIUM LACTATE
     Indication: END STAGE RENAL DISEASE
     Dosage: FILL VOLUME = 2400 ML, 5 EXCHANGES, LAST FILL  200 ML, 2 DAYTIME EXCHANGES OF 2000 ML/EACH
     Route: 033
     Dates: start: 20190101
  16. MAGNESIUM [Concomitant]
     Active Substance: MAGNESIUM
  17. COUMADIN [Concomitant]
     Active Substance: WARFARIN SODIUM

REACTIONS (1)
  - Peritonitis bacterial [Recovering/Resolving]
